FAERS Safety Report 16053313 (Version 1)
Quarter: 2019Q1

REPORT INFORMATION
  Report Type: Spontaneous
  Country: CA (occurrence: CA)
  Receive Date: 20190308
  Receipt Date: 20190308
  Transmission Date: 20190418
  Serious: Yes (Other)
  Sender: FDA-Public Use
  Company Number: CA-FRESENIUS KABI-FK201902460

PATIENT
  Age: 29 Year
  Sex: Female

DRUGS (2)
  1. PROGESTERONE INJECTION USP [Suspect]
     Active Substance: PROGESTERONE
     Indication: PREGNANCY
     Route: 065
  2. PROGESTERONE. [Suspect]
     Active Substance: PROGESTERONE
     Indication: PREGNANCY
     Route: 048

REACTIONS (1)
  - Pyogenic granuloma [Recovered/Resolved]
